APPROVED DRUG PRODUCT: BETA-VAL
Active Ingredient: BETAMETHASONE VALERATE
Strength: EQ 0.1% BASE
Dosage Form/Route: OINTMENT;TOPICAL
Application: A070069 | Product #001 | TE Code: AB
Applicant: COSETTE PHARMACEUTICALS INC
Approved: Dec 19, 1985 | RLD: No | RS: No | Type: RX